FAERS Safety Report 6268183-9 (Version None)
Quarter: 2009Q3

REPORT INFORMATION
  Report Type: 
  Country: None (occurrence: None)
  Receive Date: 20090714
  Receipt Date: 20090714
  Transmission Date: 20100115
  Serious: Yes (Other)
  Sender: FDA-Public Use
  Company Number: None

PATIENT
  Age: 61 Year
  Sex: Male

DRUGS (1)
  1. REMBRANDT WHITENING PROF CHAIRSIDE KIT (DISCONTINUED [Suspect]
     Dates: start: 20061201

REACTIONS (2)
  - ASTHMA [None]
  - CONDITION AGGRAVATED [None]
